FAERS Safety Report 5104466-3 (Version None)
Quarter: 2006Q3

REPORT INFORMATION
  Report Type: 
  Country: None (occurrence: None)
  Receive Date: 20060914
  Receipt Date: 20060821
  Transmission Date: 20061208
  Serious: Yes (Other)
  Sender: FDA-Public Use
  Company Number: US-BAYER-200613523BCC

PATIENT
  Age: 74 Year
  Sex: Female
  Weight: 75 kg

DRUGS (9)
  1. ASPIRIN [Suspect]
     Indication: PROPHYLAXIS
     Dosage: UNIT DOSE: 81 MG
     Route: 048
     Dates: start: 20010101, end: 20060720
  2. ASPIRIN [Suspect]
     Dosage: TOTAL DAILY DOSE: 81 MG  UNIT DOSE: 81 MG
     Route: 048
     Dates: start: 20060820
  3. PREVACID [Concomitant]
  4. TOPROL-XL [Concomitant]
  5. PRINIVIL [Concomitant]
  6. PRAVACHOL [Concomitant]
  7. ZETIA [Concomitant]
  8. SYNTHROID [Concomitant]
  9. CALCIUM GLUCONATE [Concomitant]

REACTIONS (7)
  - ARTERIOVENOUS MALFORMATION [None]
  - GASTROINTESTINAL ARTERIOVENOUS MALFORMATION [None]
  - HAEMATOCHEZIA [None]
  - HAEMOGLOBIN DECREASED [None]
  - IRON DEFICIENCY ANAEMIA [None]
  - SPINAL COLUMN STENOSIS [None]
  - SPINAL DECOMPRESSION [None]
